FAERS Safety Report 23033631 (Version 1)
Quarter: 2023Q4

REPORT INFORMATION
  Report Type: Spontaneous
  Country: US (occurrence: None)
  Receive Date: 20231004
  Receipt Date: 20231004
  Transmission Date: 20240110
  Serious: Yes (Other)
  Sender: FDA-Public Use
  Company Number: None

PATIENT
  Age: 35 Year
  Sex: Female
  Weight: 90 kg

DRUGS (3)
  1. NITROFURANTOIN MONOHYDRATE MACROCRYSTALS [Suspect]
     Active Substance: NITROFURANTOIN\NITROFURANTOIN MONOHYDRATE
     Indication: Urinary tract infection
     Dosage: OTHER QUANTITY : 1 CAPSULE(S);?FREQUENCY : TWICE A DAY;?
     Route: 048
     Dates: start: 20230926, end: 20231004
  2. JAIMIESS [Concomitant]
     Active Substance: ETHINYL ESTRADIOL\LEVONORGESTREL
  3. LORATADINE [Concomitant]
     Active Substance: LORATADINE

REACTIONS (7)
  - Vision blurred [None]
  - Visual impairment [None]
  - Dizziness [None]
  - Feeling abnormal [None]
  - Vertigo [None]
  - Vertigo [None]
  - Saccadic eye movement [None]

NARRATIVE: CASE EVENT DATE: 20231004
